FAERS Safety Report 4277168-3 (Version None)
Quarter: 2004Q1

REPORT INFORMATION
  Report Type: 
  Country: None (occurrence: None)
  Receive Date: 20040120
  Receipt Date: 20040113
  Transmission Date: 20041129
  Serious: Yes (Hospitalization, Other)
  Sender: FDA-Public Use
  Company Number: FRWYE506313JAN04

PATIENT
  Age: 1 Year
  Sex: Female

DRUGS (1)
  1. TAZOCILLINE (PIPERACILLIN/TAZOBACTAM, INJECTION) [Suspect]
     Indication: CYSTIC FIBROSIS
     Dosage: 800 MG 3X PER 1 DAY; INTRAVENOUS
     Route: 042
     Dates: start: 20030601, end: 20030601

REACTIONS (3)
  - ACCIDENTAL OVERDOSE [None]
  - HYPERTHERMIA [None]
  - MEDICATION ERROR [None]
